FAERS Safety Report 23153141 (Version 1)
Quarter: 2023Q4

REPORT INFORMATION
  Report Type: Report from Study
  Country: IT (occurrence: IT)
  Receive Date: 20231107
  Receipt Date: 20231107
  Transmission Date: 20240110
  Serious: Yes (Other)
  Sender: FDA-Public Use
  Company Number: None

PATIENT
  Age: 83 Year
  Sex: Male
  Weight: 70 kg

DRUGS (3)
  1. FLUOROURACIL [Suspect]
     Active Substance: FLUOROURACIL
     Indication: Adenocarcinoma of colon
     Dosage: 510 IN BOLUS+3060 IV IN PUMP EVERY 21 DAYS
     Dates: start: 20230918, end: 20230918
  2. IRINOTECAN [Suspect]
     Active Substance: IRINOTECAN
     Indication: Adenocarcinoma of colon
     Dosage: 230 MG EVERY 21 DAYS
     Dates: start: 20230918, end: 20230918
  3. BEVACIZUMAB [Suspect]
     Active Substance: BEVACIZUMAB
     Indication: Adenocarcinoma of colon
     Dosage: 350 MG EVERY 21 DAYS
     Dates: start: 20230918, end: 20230918

REACTIONS (1)
  - Faecaluria [Unknown]

NARRATIVE: CASE EVENT DATE: 20230919
